FAERS Safety Report 23772945 (Version 2)
Quarter: 2024Q2

REPORT INFORMATION
  Report Type: Spontaneous
  Country: US (occurrence: US)
  Receive Date: 20240423
  Receipt Date: 20240624
  Transmission Date: 20240716
  Serious: No
  Sender: FDA-Public Use
  Company Number: US-SA-SAC20240416000895

PATIENT
  Age: 73 Year
  Sex: Female

DRUGS (2)
  1. DUPIXENT [Suspect]
     Active Substance: DUPILUMAB
     Indication: Nasal polyps
     Dosage: 300 MG, QOW
     Route: 058
     Dates: start: 202402
  2. CEFDINIR [Concomitant]
     Active Substance: CEFDINIR
     Indication: Pulmonary congestion

REACTIONS (14)
  - Sneezing [Unknown]
  - Anosmia [Not Recovered/Not Resolved]
  - Rhinorrhoea [Unknown]
  - Increased bronchial secretion [Recovered/Resolved]
  - Respiratory tract congestion [Not Recovered/Not Resolved]
  - Condition aggravated [Unknown]
  - Productive cough [Unknown]
  - Taste disorder [Unknown]
  - Condition aggravated [Unknown]
  - Lacrimation increased [Unknown]
  - Mobility decreased [Unknown]
  - Arthralgia [Unknown]
  - Eye pruritus [Unknown]
  - Upper-airway cough syndrome [Unknown]

NARRATIVE: CASE EVENT DATE: 20240101
